FAERS Safety Report 8142269-6 (Version None)
Quarter: 2012Q1

REPORT INFORMATION
  Report Type: 
  Country: None (occurrence: None)
  Receive Date: 20120216
  Receipt Date: 20120213
  Transmission Date: 20120608
  Serious: Yes (Hospitalization)
  Sender: FDA-Public Use
  Company Number: US-B.I. PHARMACEUTICALS,INC./RIDGEFIELD-2011-BP-10499BP

PATIENT
  Sex: Female

DRUGS (2)
  1. SPIRIVA [Suspect]
     Indication: CHRONIC OBSTRUCTIVE PULMONARY DISEASE
     Dosage: 18 MCG
     Route: 055
     Dates: start: 20000101
  2. NEURONTIN [Concomitant]
     Indication: FIBROMYALGIA

REACTIONS (5)
  - PNEUMONIA [None]
  - URINARY TRACT INFECTION [None]
  - OSTEOPOROSIS [None]
  - TOTAL LUNG CAPACITY ABNORMAL [None]
  - GLAUCOMA [None]
